FAERS Safety Report 7811502-X (Version None)
Quarter: 2011Q4

REPORT INFORMATION
  Report Type: 
  Country: None (occurrence: None)
  Receive Date: 20111013
  Receipt Date: 20111013
  Transmission Date: 20120403
  Serious: Yes (Disabling)
  Sender: FDA-Public Use
  Company Number: None

PATIENT
  Age: 34 Year
  Weight: 61.688 kg

DRUGS (2)
  1. GEMICTIABINE [Concomitant]
  2. TAXOTERE [Suspect]
     Indication: BREAST CANCER

REACTIONS (1)
  - RASH [None]
